FAERS Safety Report 24442091 (Version 2)
Quarter: 2024Q4

REPORT INFORMATION
  Report Type: Spontaneous
  Country: NZ (occurrence: NZ)
  Receive Date: 20241016
  Receipt Date: 20241017
  Transmission Date: 20250115
  Serious: No
  Sender: ROCHE
  Company Number: NZ-ROCHE-3530831

PATIENT
  Age: 46 Year
  Sex: Male
  Weight: 100.0 kg

DRUGS (1)
  1. HEMLIBRA [Suspect]
     Active Substance: EMICIZUMAB-KXWH
     Indication: Factor VIII deficiency
     Route: 058
     Dates: start: 20231027

REACTIONS (2)
  - Nausea [Recovering/Resolving]
  - Somatic symptom disorder [Unknown]

NARRATIVE: CASE EVENT DATE: 20231110
